FAERS Safety Report 8129636 (Version 3)
Quarter: 2013Q1

REPORT INFORMATION
  Report Type: Spontaneous
  Country: US (occurrence: None)
  Receive Date: 20110831
  Receipt Date: 20130226
  Transmission Date: 20140127
  Serious: Yes (Hospitalization)
  Sender: FDA-Public Use
  Company Number: 2011AP001836

PATIENT
  Age: 11 Year
  Sex: Male

DRUGS (1)
  1. LEVETIRACETAM [Suspect]

REACTIONS (8)
  - ATTENTION DEFICIT/HYPERACTIVITY DISORDER [None]
  - MYOCLONUS [None]
  - CONVULSION [None]
  - DRUG INEFFECTIVE [None]
  - INSOMNIA [None]
  - Dropped head syndrome [None]
  - Balance disorder [None]
  - Fall [None]
